FAERS Safety Report 9972111 (Version 1)
Quarter: 2014Q1

REPORT INFORMATION
  Report Type: Spontaneous
  Country: US (occurrence: None)
  Receive Date: 20140305
  Receipt Date: 20140305
  Transmission Date: 20141002
  Serious: Yes (Other)
  Sender: FDA-Public Use
  Company Number: None

PATIENT
  Age: 19 Year
  Sex: Male
  Weight: 74.84 kg

DRUGS (1)
  1. STRATTERA 60 MG LILLY [Suspect]
     Indication: ATTENTION DEFICIT/HYPERACTIVITY DISORDER
     Dosage: 1 PILL, ONCE DAILY, TAKEN BY MOUTH
     Route: 048

REACTIONS (8)
  - Suicidal ideation [None]
  - Pain in jaw [None]
  - Insomnia [None]
  - Anger [None]
  - Anxiety [None]
  - Convulsion [None]
  - Self injurious behaviour [None]
  - Aggression [None]
